FAERS Safety Report 21614987 (Version 1)
Quarter: 2022Q4

REPORT INFORMATION
  Report Type: Spontaneous
  Country: ES (occurrence: ES)
  Receive Date: 20221118
  Receipt Date: 20221118
  Transmission Date: 20230113
  Serious: Yes (Life-Threatening)
  Sender: FDA-Public Use
  Company Number: None

PATIENT
  Age: 38 Year
  Sex: Male
  Weight: 61 kg

DRUGS (20)
  1. PIPERACILLIN AND TAZOBACTAM [Suspect]
     Active Substance: PIPERACILLIN SODIUM\TAZOBACTAM SODIUM
     Indication: Product used for unknown indication
     Dosage: #2
  2. PIPERACILLIN AND TAZOBACTAM [Suspect]
     Active Substance: PIPERACILLIN SODIUM\TAZOBACTAM SODIUM
     Dosage: #1 #3
  3. PIPERACILLIN AND TAZOBACTAM [Suspect]
     Active Substance: PIPERACILLIN SODIUM\TAZOBACTAM SODIUM
     Dosage: 3 DOSAGE FORMS DAILY; UNIT DOSE:1 DOSAGE FORM, 3X / DAY ,FREQUENCY 8 HOURS
  4. PIPERACILLIN AND TAZOBACTAM [Suspect]
     Active Substance: PIPERACILLIN SODIUM\TAZOBACTAM SODIUM
     Dosage: UNK, 3X / DAY ,FREQUENCY :8 HOURS  ,DURATION :5 DAYS
     Dates: start: 20010321, end: 20010325
  5. PIPERACILLIN AND TAZOBACTAM [Suspect]
     Active Substance: PIPERACILLIN SODIUM\TAZOBACTAM SODIUM
     Dosage: 80 MILLIGRAM DAILY; 40 MG, Q12H; IV NOS 9 DF, QD; IV BOLUS 3 DF, QD; IV BOLUS
  6. PIPERACILLIN AND TAZOBACTAM [Suspect]
     Active Substance: PIPERACILLIN SODIUM\TAZOBACTAM SODIUM
     Dosage: UNK, 1X / DAY ,THERAPY END DATE :NASK ,FREQUENCY TIME :24 HOURS
     Dates: start: 20090329
  7. OMEPRAZOLE [Suspect]
     Active Substance: OMEPRAZOLE
     Indication: Product used for unknown indication
     Dosage: 20 MILLIGRAM DAILY; UNIT DOSE:20 MILLIGRAM, 1X / DAY  ,FREQUENCY TIME :1 DAYS ,THERAPY END DATE :NAS
     Dates: start: 20010321
  8. SODIUM [Suspect]
     Active Substance: SODIUM
     Indication: Product used for unknown indication
     Dosage: 3 DOSAGE FORMS DAILY; UNIT DOSE:1 DOSAGE FORM, 3X / DAY ,FREQUENCY TIME 8 HOURS
  9. SODIUM [Suspect]
     Active Substance: SODIUM
     Dosage: 40 MG, Q12H; IV NOS 9 DF, QD; IV BOLUS 3 DF, QD; IV BOLUS
  10. SODIUM [Suspect]
     Active Substance: SODIUM
     Dosage: UNK, 3X / DAY ,DURATION 5 DAYS, FREQUENCY TIME :8 HOURS
     Dates: start: 20010321, end: 20010325
  11. SODIUM [Suspect]
     Active Substance: SODIUM
     Dosage: UNK#1 #3 ) PIPERACILLIN SODIUM/TAZOBACTAM
  12. SODIUM [Suspect]
     Active Substance: SODIUM
     Dosage: UNK, 1X / DAY ,THERAPY START DATE: NASK ,FREQUENCY TIME :24 HOURS
     Dates: end: 20090329
  13. SODIUM [Suspect]
     Active Substance: SODIUM
     Dosage: #2
  14. PIPERACILLIN SODIUM\TAZOBACTAM SODIUM [Suspect]
     Active Substance: PIPERACILLIN SODIUM\TAZOBACTAM SODIUM
     Indication: Product used for unknown indication
     Dosage: 3 DOSAGE FORMS DAILY; UNIT DOSE:3 DOSAGE FORM, 1X / DAY, 4/0.5 G  ,DURATION 9 DAYS?TAZOCEL 4/0.5 G I
     Route: 042
     Dates: start: 20010321, end: 20010329
  15. PIPERACILLIN SODIUM\TAZOBACTAM SODIUM [Suspect]
     Active Substance: PIPERACILLIN SODIUM\TAZOBACTAM SODIUM
     Dosage: UNIT DOSE: 9 DOSAGE FORM, 4/0,5 G ,FREQUENCY TIME :1 DAYS, DURATION 9 DAYS
     Route: 042
     Dates: start: 20010321, end: 20010329
  16. METAMIZOLE SODIUM [Suspect]
     Active Substance: METAMIZOLE SODIUM
     Indication: Product used for unknown indication
     Dosage: 3 GRAM DAILY;  1X / DAY, IV NOS 0.33 G, Q8H; IV NOS, UNIT DOSE:3 GRAM, FREQUENCY TIME :24 HOURS, DUR
     Dates: start: 20010325, end: 20010328
  17. METAMIZOLE SODIUM [Suspect]
     Active Substance: METAMIZOLE SODIUM
     Dosage: UNK, 1X / DAY ,FREQUENCY TIME :24 HOURS
  18. METAMIZOLE SODIUM [Suspect]
     Active Substance: METAMIZOLE SODIUM
     Dosage: 0.4 GRAM PER MILLILITRE
  19. METHYLPREDNISOLONE SODIUM SUCCINATE [Suspect]
     Active Substance: METHYLPREDNISOLONE SODIUM SUCCINATE
     Indication: Product used for unknown indication
     Dosage: 160 MILLIGRAM DAILY; UNIT DOSE:160 MILLIGRAM, 1X / DAY,1 INJECTABLE ,ROUTE OF ADMINISTRATION : OTHER
     Dates: start: 20010321, end: 20010325
  20. KETOROLAC TROMETHAMINE [Suspect]
     Active Substance: KETOROLAC TROMETHAMINE
     Indication: Product used for unknown indication
     Dosage: 6 AMPOULES 1ML INJECTABLE,UNIT DOSE 30 MG ,FREQUENCY TIME 1 DAYS ,DURATION :5 DAYS
     Route: 042
     Dates: start: 20010321, end: 20010325

REACTIONS (1)
  - Agranulocytosis [Recovered/Resolved]

NARRATIVE: CASE EVENT DATE: 20010327
